FAERS Safety Report 21757608 (Version 1)
Quarter: 2022Q4

REPORT INFORMATION
  Report Type: Spontaneous
  Country: US (occurrence: None)
  Receive Date: 20221221
  Receipt Date: 20221221
  Transmission Date: 20230113
  Serious: No
  Sender: FDA-Public Use
  Company Number: US-ROCHE-3181986

PATIENT
  Sex: Male

DRUGS (1)
  1. GAVRETO [Suspect]
     Active Substance: PRALSETINIB
     Indication: Thyroid neoplasm
     Route: 048
     Dates: start: 202207

REACTIONS (6)
  - Arthralgia [Unknown]
  - Headache [Unknown]
  - Nausea [Unknown]
  - Flatulence [Unknown]
  - Decreased appetite [Unknown]
  - Insomnia [Unknown]
